FAERS Safety Report 5050926-3 (Version None)
Quarter: 2006Q3

REPORT INFORMATION
  Report Type: 
  Country: None (occurrence: None)
  Receive Date: 20060710
  Receipt Date: 20060622
  Transmission Date: 20061208
  Serious: Yes (Other)
  Sender: FDA-Public Use
  Company Number: S06-CAN-02625-01

PATIENT
  Age: 81 Year
  Sex: Female

DRUGS (10)
  1. ESCITALOPRAM OXALATE [Suspect]
     Dosage: 10 MG QD PO
     Route: 048
  2. PMS-MELOXICAM (MELOXICAM) [Suspect]
     Dosage: 15 MG QD PO
     Route: 048
  3. ALPRAZOLAM [Concomitant]
  4. ATENOLOL [Concomitant]
  5. FLOVENT [Concomitant]
  6. FOLIC ACID [Concomitant]
  7. LORAZEPAM [Concomitant]
  8. NORVASC [Concomitant]
  9. PHENYTOIN [Concomitant]
  10. ALBUTEROL SPIROS [Concomitant]

REACTIONS (2)
  - DUODENAL ULCER [None]
  - RENAL FAILURE ACUTE [None]
